FAERS Safety Report 8265884-8 (Version None)
Quarter: 2012Q2

REPORT INFORMATION
  Report Type: 
  Country: None (occurrence: None)
  Receive Date: 20120406
  Receipt Date: 20120327
  Transmission Date: 20120825
  Serious: Yes (Hospitalization)
  Sender: FDA-Public Use
  Company Number: FR-GLAXOSMITHKLINE-B0791314A

PATIENT
  Age: 80 Year
  Sex: Female
  Weight: 70 kg

DRUGS (2)
  1. ARIXTRA [Suspect]
     Indication: ERYSIPELAS
     Dosage: 2.5MG PER DAY
     Route: 058
     Dates: start: 20111001, end: 20111014
  2. AUGMENTIN '125' [Concomitant]
     Indication: ERYSIPELAS

REACTIONS (2)
  - SKIN NECROSIS [None]
  - HAEMATOMA [None]
